FAERS Safety Report 9980647 (Version 2)
Quarter: 2014Q2

REPORT INFORMATION
  Report Type: Report from Study
  Country: US (occurrence: US)
  Receive Date: 20140307
  Receipt Date: 20140513
  Transmission Date: 20141212
  Serious: Yes (Hospitalization)
  Sender: FDA-Public Use
  Company Number: US-ROCHE-1357679

PATIENT
  Sex: Male
  Weight: 65.83 kg

DRUGS (6)
  1. ZELBORAF [Suspect]
     Indication: MALIGNANT MELANOMA
     Route: 048
     Dates: start: 2013
  2. ZELBORAF [Suspect]
     Route: 048
     Dates: start: 201401
  3. PEPCID [Concomitant]
     Indication: GASTROOESOPHAGEAL REFLUX DISEASE
  4. REGLAN [Concomitant]
     Indication: GASTRIC DISORDER
  5. DEXILANT [Concomitant]
     Indication: GASTRIC DISORDER
  6. ASA [Concomitant]
     Route: 065

REACTIONS (3)
  - Full blood count decreased [Not Recovered/Not Resolved]
  - Sunburn [Recovering/Resolving]
  - Malaise [Unknown]
